FAERS Safety Report 12820222 (Version 1)
Quarter: 2016Q4

REPORT INFORMATION
  Report Type: Spontaneous
  Country: ES (occurrence: ES)
  Receive Date: 20161006
  Receipt Date: 20161006
  Transmission Date: 20170207
  Serious: Yes (Other)
  Sender: FDA-Public Use
  Company Number: ES-SEPTODONT-201603644

PATIENT

DRUGS (1)
  1. MEGANEST 1:100.000 [Suspect]
     Active Substance: ARTICAINE HYDROCHLORIDE\EPINEPHRINE BITARTRATE
     Indication: LOCAL ANAESTHESIA
     Route: 004

REACTIONS (4)
  - Tremor [Unknown]
  - Tachycardia [Unknown]
  - Hyperhidrosis [Unknown]
  - Ventricular fibrillation [Unknown]
